FAERS Safety Report 6370890-4 (Version None)
Quarter: 2009Q3

REPORT INFORMATION
  Report Type: 
  Country: None (occurrence: None)
  Receive Date: 20090923
  Receipt Date: 20080104
  Transmission Date: 20100115
  Serious: Yes (Other)
  Sender: FDA-Public Use
  Company Number: US-ASTRAZENECA-2006UW22516

PATIENT
  Age: 17562 Day
  Sex: Female
  Weight: 74.8 kg

DRUGS (26)
  1. SEROQUEL [Suspect]
     Indication: SCHIZOPHRENIA
     Route: 048
     Dates: start: 19970101
  2. SEROQUEL [Suspect]
     Indication: DEPRESSION
     Route: 048
     Dates: start: 19970101
  3. SEROQUEL [Suspect]
     Indication: ANXIETY
     Route: 048
     Dates: start: 19970101
  4. SEROQUEL [Suspect]
     Route: 048
     Dates: start: 20001004
  5. SEROQUEL [Suspect]
     Route: 048
     Dates: start: 20001004
  6. SEROQUEL [Suspect]
     Route: 048
     Dates: start: 20001004
  7. HALDOL [Concomitant]
     Dosage: STRENGTH - 5 MG, 10 MG, DOSE - 5 - 20 MG DAILY
     Route: 048
     Dates: start: 19840202
  8. HALDOL [Concomitant]
  9. NAVANE [Concomitant]
     Dosage: 2 TABLETS IN THE MORNING AND 2 TABLETS AT NIGHT
     Route: 048
     Dates: start: 19820524
  10. RISPERDAL [Concomitant]
  11. STELAZINE [Concomitant]
  12. THORAZINE [Concomitant]
     Route: 048
     Dates: start: 19840202
  13. COGENTIN [Concomitant]
     Route: 048
     Dates: start: 19820524
  14. METFORMIN HCL [Concomitant]
     Route: 048
     Dates: start: 20060227
  15. AVANDIA [Concomitant]
     Route: 048
     Dates: start: 20060227
  16. NORPRAMIN [Concomitant]
     Dosage: STRENGTH - 25 MG, 50 MG, DOSE - 25 - 100 MG DAILY
     Route: 048
     Dates: start: 19880419
  17. PREDNISONE [Concomitant]
     Route: 048
     Dates: start: 20011024
  18. DIAZEPAM [Concomitant]
     Dosage: STRENGTH - 5 MG, 10 MG, DOSE - 10 - 30 MG DAILY
     Route: 048
     Dates: start: 19880317
  19. FENTANYL CITRATE [Concomitant]
     Route: 048
     Dates: start: 20011024
  20. ASPIRIN [Concomitant]
     Route: 048
     Dates: start: 20071130
  21. LORAZEPAM [Concomitant]
     Route: 048
     Dates: start: 20071130
  22. NADOLOL [Concomitant]
     Route: 048
     Dates: start: 20071130
  23. DARVOCET-N 100 [Concomitant]
     Route: 048
     Dates: start: 20071130
  24. ARTANE [Concomitant]
     Route: 048
     Dates: start: 19880317
  25. HALCION [Concomitant]
     Indication: SLEEP DISORDER
     Route: 048
     Dates: start: 19870921
  26. MIDAZOLAM HCL [Concomitant]
     Dosage: 1 MG/ML
     Dates: start: 20011024

REACTIONS (2)
  - TARDIVE DYSKINESIA [None]
  - TYPE 2 DIABETES MELLITUS [None]
